FAERS Safety Report 5796851-1 (Version None)
Quarter: 2008Q3

REPORT INFORMATION
  Report Type: 
  Country: None (occurrence: None)
  Receive Date: 20080701
  Receipt Date: 20080625
  Transmission Date: 20090109
  Serious: Yes (Other)
  Sender: FDA-Public Use
  Company Number: US-WYE-H04714908

PATIENT
  Age: 6 Year
  Sex: Male

DRUGS (1)
  1. ROBITUSSIN NIGHT TIME COUGH AND COLD [Suspect]
     Indication: COUGH
     Dosage: 1 TSP EVERY 1 DAY;  CUMULATIVE DOSE TO EVENT: 1 TSP
     Route: 048
     Dates: start: 20080620, end: 20080620

REACTIONS (1)
  - RASH [None]
